FAERS Safety Report 8765619 (Version 3)
Quarter: 2012Q4

REPORT INFORMATION
  Report Type: 
  Country: GB (occurrence: GB)
  Receive Date: 20120903
  Receipt Date: 20121119
  Transmission Date: 20130627
  Serious: Yes (Other)
  Sender: FDA-Public Use
  Company Number: PHFR2012GB004750

PATIENT
  Age: 27 Year
  Sex: Male

DRUGS (5)
  1. CLOZARIL [Suspect]
     Indication: SCHIZOPHRENIA
     Dosage: UNK UKN, UNK
     Route: 048
     Dates: start: 20100805
  2. AMISULPRIDE [Concomitant]
     Dosage: 600 mg, QD
     Route: 048
  3. SIMVASTATIN [Concomitant]
     Dosage: 20 mg, QD
     Route: 048
  4. PIRENZEPINE [Concomitant]
     Dosage: 150mg at morning and 100 mg at evening
  5. LACTULOSE [Concomitant]
     Dosage: 15 ml, BID

REACTIONS (2)
  - White blood cell count increased [Recovered/Resolved]
  - Neutrophil count increased [Recovered/Resolved]
